FAERS Safety Report 14409479 (Version 1)
Quarter: 2018Q1

REPORT INFORMATION
  Report Type: Spontaneous
  Country: JP (occurrence: JP)
  Receive Date: 20180119
  Receipt Date: 20180119
  Transmission Date: 20180509
  Serious: Yes (Hospitalization, Other)
  Sender: FDA-Public Use
  Company Number: JP-STRIDES ARCOLAB LIMITED-2018SP000313

PATIENT
  Age: 51 Year
  Sex: Male

DRUGS (5)
  1. NICORANDIL [Concomitant]
     Active Substance: NICORANDIL
     Indication: ARTERIOSPASM CORONARY
     Dosage: UNKNOWN
     Route: 048
  2. NIFEDIPINE. [Interacting]
     Active Substance: NIFEDIPINE
     Indication: ARTERIOSPASM CORONARY
     Dosage: UNKNOWN
     Route: 048
  3. ISOSORBIDE DINITRATE. [Concomitant]
     Active Substance: ISOSORBIDE DINITRATE
     Indication: ARTERIOSPASM CORONARY
     Dosage: UNKNOWN
     Route: 065
  4. TACROLIMUS. [Suspect]
     Active Substance: TACROLIMUS
     Indication: COLITIS ULCERATIVE
     Dosage: 8 MG PER DAY
     Route: 065
  5. NICORANDIL [Concomitant]
     Active Substance: NICORANDIL
     Dosage: UNK
     Route: 042

REACTIONS (7)
  - Arteriospasm coronary [Recovered/Resolved]
  - Condition aggravated [Recovered/Resolved]
  - Drug level increased [Recovered/Resolved]
  - Off label use [Unknown]
  - Chest pain [Recovered/Resolved]
  - Myocardial ischaemia [Recovered/Resolved]
  - Drug interaction [Recovered/Resolved]
